FAERS Safety Report 22996693 (Version 3)
Quarter: 2024Q1

REPORT INFORMATION
  Report Type: Report from Study
  Country: US (occurrence: US)
  Receive Date: 20230928
  Receipt Date: 20240122
  Transmission Date: 20240409
  Serious: Yes (Other)
  Sender: FDA-Public Use
  Company Number: US-ABBVIE-5425117

PATIENT
  Sex: Male

DRUGS (2)
  1. HUMIRA [Suspect]
     Active Substance: ADALIMUMAB
     Indication: Crohn^s disease
     Dosage: FORM STRENGTH: 40 MILLIGRAM, CITRATE FREE
     Route: 058
     Dates: start: 20170627
  2. FARXIGA [Concomitant]
     Active Substance: DAPAGLIFLOZIN PROPANEDIOL
     Indication: Product used for unknown indication

REACTIONS (10)
  - Myocardial infarction [Unknown]
  - Vertigo [Unknown]
  - Diarrhoea [Recovering/Resolving]
  - Musculoskeletal chest pain [Not Recovered/Not Resolved]
  - Catheter placement [Unknown]
  - Myocardial infarction [Recovering/Resolving]
  - Herpes zoster [Not Recovered/Not Resolved]
  - Ageusia [Unknown]
  - Dysphonia [Recovering/Resolving]
  - Prostatic operation [Recovered/Resolved]

NARRATIVE: CASE EVENT DATE: 20230101
